FAERS Safety Report 6236589-X (Version None)
Quarter: 2009Q2

REPORT INFORMATION
  Report Type: 
  Country: None (occurrence: None)
  Receive Date: 20090619
  Receipt Date: 20090615
  Transmission Date: 20091009
  Serious: Yes (Death, Hospitalization)
  Sender: FDA-Public Use
  Company Number: DK-WYE-G03807609

PATIENT
  Sex: Female

DRUGS (11)
  1. TORISEL [Suspect]
     Indication: COLORECTAL CANCER
     Dosage: 25 MG EVERY 1 TOT
     Dates: start: 20090422, end: 20090422
  2. TORISEL [Suspect]
     Dosage: 25 MG EVERY 1 TOT
     Dates: start: 20090429, end: 20090429
  3. TORISEL [Suspect]
     Dosage: 20 MG EVERY 1 TOT
     Dates: start: 20090513, end: 20090513
  4. OXYNORM [Concomitant]
     Dosage: 10 MG EVERY 1 PRN
     Route: 048
  5. HJERTEMAGNYL [Concomitant]
     Route: 048
  6. OXAPAX [Concomitant]
     Dosage: 15 MG EVERY 1 PRN
     Route: 048
  7. GABAPENTIN [Concomitant]
     Route: 048
  8. FURIX [Concomitant]
     Route: 048
  9. SERENASE [Concomitant]
     Route: 048
  10. OXYCONTIN [Concomitant]
     Dosage: 10 MG IN THE MORNING, 10 MG IN THE AFTERNOON AND 40 MG IN THE EVENING
     Route: 048
  11. PREDNISOLONE [Concomitant]
     Route: 048

REACTIONS (2)
  - ASCITES [None]
  - ELECTROLYTE IMBALANCE [None]
